FAERS Safety Report 4372933-6 (Version None)
Quarter: 2004Q2

REPORT INFORMATION
  Report Type: 
  Country: None (occurrence: None)
  Receive Date: 20040603
  Receipt Date: 20040521
  Transmission Date: 20050107
  Serious: Yes (Other)
  Sender: FDA-Public Use
  Company Number: 2004-DE-03028DE

PATIENT
  Age: 65 Year
  Sex: Female

DRUGS (3)
  1. SIFROL 0.7 MG (PRAMIPEXOLE DIHYDROCHLORIDE) (TA)(PRAMIPEXOLE) [Suspect]
     Indication: PARKINSON'S DISEASE
     Dosage: 0.7 MG, PO
     Route: 048
  2. MADOPAR (MADOPAR) [Suspect]
     Indication: PARKINSON'S DISEASE
  3. EFFORTIL (ETILEFRINE HYDROCHLORIDED) [Concomitant]

REACTIONS (1)
  - BLOOD PRESSURE DECREASED [None]
